FAERS Safety Report 5563645-1 (Version None)
Quarter: 2007Q4

REPORT INFORMATION
  Report Type: 
  Country: None (occurrence: None)
  Receive Date: 20071217
  Receipt Date: 20071207
  Transmission Date: 20080405
  Serious: Yes (Hospitalization, Other)
  Sender: FDA-Public Use
  Company Number: GB-JNJFOC-20071202735

PATIENT
  Sex: Female
  Weight: 48 kg

DRUGS (13)
  1. REMICADE [Suspect]
     Indication: RHEUMATOID ARTHRITIS
     Route: 042
  2. METHOTREXATE [Concomitant]
  3. ASPIRIN [Concomitant]
  4. ATENOLOL [Concomitant]
  5. CLOPIDOGREL [Concomitant]
  6. FOLIC ACID [Concomitant]
  7. GTN SPRAY [Concomitant]
  8. LANSOPRAZOLE [Concomitant]
  9. LISINOPRIL [Concomitant]
  10. PLAQUENIL [Concomitant]
  11. PRAVASTATIN [Concomitant]
  12. RISEDRONATE SODIUM [Concomitant]
  13. ISMIN [Concomitant]

REACTIONS (1)
  - JOINT DISLOCATION [None]
